FAERS Safety Report 9152925 (Version 2)
Quarter: 2013Q1

REPORT INFORMATION
  Report Type: Spontaneous
  Country: US (occurrence: US)
  Receive Date: 20130308
  Receipt Date: 20130328
  Transmission Date: 20140127
  Serious: Yes (Other)
  Sender: FDA-Public Use
  Company Number: US-RB-050747-13

PATIENT
  Age: 0 Year
  Sex: Female

DRUGS (8)
  1. GENERIC BUPRENORPHINE [Suspect]
     Indication: PRODUCT USED FOR UNKNOWN INDICATION
     Route: 064
     Dates: start: 20120730, end: 20130214
  2. GENERIC BUPRENORPHINE [Suspect]
     Dosage: DOSAGE DETAILS NOT SPECIFIED
     Route: 063
     Dates: start: 20130214
  3. NICOTINE [Suspect]
     Indication: NICOTINE DEPENDENCE
     Dosage: 10 CIGARETTES PER DAY
     Route: 064
     Dates: start: 20120530, end: 20130214
  4. NICOTINE [Suspect]
     Dosage: 10 CIGARETTES PER DAY
     Route: 063
     Dates: start: 20130214
  5. PRILOSEC [Suspect]
     Indication: GASTROOESOPHAGEAL REFLUX DISEASE
     Route: 064
     Dates: end: 20130214
  6. PRILOSEC [Suspect]
     Route: 063
     Dates: start: 20130214
  7. ALBUTEROL [Suspect]
     Dosage: TAKEN BY PATIENT^S MOTHER AS NEEDED. NO DOSING INFORMATION REPORTED.
     Route: 064
     Dates: end: 20130214
  8. ALBUTEROL [Suspect]
     Indication: WHEEZING
     Dosage: TAKEN AS NEEDED BY PATIENT^S MOTHER. NO DOSING INFORMATION REPORTED.
     Route: 063
     Dates: start: 20130214

REACTIONS (3)
  - Low birth weight baby [Unknown]
  - Exposure during breast feeding [Not Recovered/Not Resolved]
  - Foetal exposure during pregnancy [Recovered/Resolved]
